FAERS Safety Report 4894321-6 (Version None)
Quarter: 2006Q1

REPORT INFORMATION
  Report Type: 
  Country: None (occurrence: None)
  Receive Date: 20060127
  Receipt Date: 20050517
  Transmission Date: 20060701
  Serious: Yes (Hospitalization, Other)
  Sender: FDA-Public Use
  Company Number: US-MERCK-0505USA02097

PATIENT
  Age: 68 Year
  Sex: Female
  Weight: 54 kg

DRUGS (2)
  1. VIOXX [Suspect]
     Indication: ARTHRALGIA
     Route: 048
     Dates: start: 20000224, end: 20030501
  2. VIOXX [Suspect]
     Indication: OSTEOPOROSIS
     Route: 048
     Dates: start: 20000224, end: 20030501

REACTIONS (27)
  - ABDOMINAL DISCOMFORT [None]
  - ACUTE CORONARY SYNDROME [None]
  - ANAEMIA [None]
  - ANGINA PECTORIS [None]
  - ARTERIOSCLEROSIS [None]
  - BACK PAIN [None]
  - BREAST CANCER STAGE IV [None]
  - CARDIAC FAILURE CONGESTIVE [None]
  - CATARACT [None]
  - CATARACT OPERATION [None]
  - CHOLECYSTITIS [None]
  - CHOLESTEROSIS [None]
  - CORONARY ARTERY DISEASE [None]
  - CORONARY ARTERY OCCLUSION [None]
  - CORONARY OSTIAL STENOSIS [None]
  - DEPRESSION [None]
  - GALLBLADDER OPERATION [None]
  - HYPERCHOLESTEROLAEMIA [None]
  - INJURY [None]
  - METASTASES TO LYMPH NODES [None]
  - METASTASES TO UTERUS [None]
  - MYOCARDIAL INFARCTION [None]
  - NAUSEA [None]
  - NEPHROLITHIASIS [None]
  - OESOPHAGEAL STENOSIS [None]
  - OSTEOPOROSIS [None]
  - VOMITING [None]
